FAERS Safety Report 7094287-7 (Version None)
Quarter: 2010Q4

REPORT INFORMATION
  Report Type: 
  Country: None (occurrence: None)
  Receive Date: 20101102
  Receipt Date: 20101025
  Transmission Date: 20110411
  Serious: Yes (Life-Threatening, Other)
  Sender: FDA-Public Use
  Company Number: 2010MA003960

PATIENT
  Age: 59 Year
  Sex: Male

DRUGS (3)
  1. GABAPENTIN [Suspect]
     Indication: PAIN
     Dosage: PO
     Route: 048
     Dates: start: 20100730, end: 20100922
  2. CON MEDS [Concomitant]
  3. PREV MEDS [Concomitant]

REACTIONS (3)
  - ABDOMINAL PAIN [None]
  - GASTRIC HAEMORRHAGE [None]
  - HAEMATOCHEZIA [None]
